FAERS Safety Report 8961171 (Version 3)
Quarter: 2013Q2

REPORT INFORMATION
  Report Type: Spontaneous
  Country: US (occurrence: US)
  Receive Date: 20121213
  Receipt Date: 20130417
  Transmission Date: 20140414
  Serious: Yes (Life-Threatening, Disabling)
  Sender: FDA-Public Use
  Company Number: US-BAYER-2012-128642

PATIENT
  Age: 23 Year
  Sex: Female

DRUGS (7)
  1. YAZ [Suspect]
  2. YASMIN [Suspect]
  3. OCELLA [Suspect]
  4. SPIRONOLACTONE AND HYDROCHLOROTHIAZIDE [Concomitant]
     Dosage: 25-25
  5. ADVAIR [Concomitant]
     Dosage: 100-50 DISKUS
  6. PREDNISONE [Concomitant]
     Dosage: 10 MG, UNK
  7. SINGULAIR [Concomitant]
     Dosage: 10 MG, UNK

REACTIONS (10)
  - Pulmonary embolism [None]
  - Deep vein thrombosis [Recovered/Resolved]
  - Injury [None]
  - Pain [None]
  - General physical health deterioration [None]
  - Emotional distress [None]
  - Anxiety [None]
  - Anhedonia [None]
  - Pain [None]
  - Pelvic venous thrombosis [Recovered/Resolved]
